FAERS Safety Report 18106564 (Version 1)
Quarter: 2020Q3

REPORT INFORMATION
  Report Type: Spontaneous
  Country: IT (occurrence: IT)
  Receive Date: 20200803
  Receipt Date: 20200803
  Transmission Date: 20201103
  Serious: Yes (Hospitalization)
  Sender: FDA-Public Use
  Company Number: IT-ANIPHARMA-2020-IT-000133

PATIENT
  Age: 83 Year
  Sex: Male

DRUGS (8)
  1. AMIODARONE [Suspect]
     Active Substance: AMIODARONE
     Indication: PRODUCT USED FOR UNKNOWN INDICATION
  2. CLOPIDOGREL [Concomitant]
     Active Substance: CLOPIDOGREL BISULFATE
  3. IVABRADINE [Concomitant]
     Active Substance: IVABRADINE
  4. BICALUTAMIDE. [Suspect]
     Active Substance: BICALUTAMIDE
     Indication: PROSTATE CANCER
     Dosage: 150 MG DAILY
  5. ASPIRIN. [Concomitant]
     Active Substance: ASPIRIN
  6. ALLOPURINOL. [Concomitant]
     Active Substance: ALLOPURINOL
  7. FUROSEMIDE. [Concomitant]
     Active Substance: FUROSEMIDE
  8. ATORVASTATIN [Concomitant]
     Active Substance: ATORVASTATIN

REACTIONS (3)
  - Ventricular fibrillation [Recovered/Resolved]
  - Cardiac arrest [Recovered/Resolved]
  - Torsade de pointes [Recovered/Resolved]
